FAERS Safety Report 4685586-4 (Version None)
Quarter: 2005Q2

REPORT INFORMATION
  Report Type: 
  Country: None (occurrence: None)
  Receive Date: 20050608
  Receipt Date: 20050527
  Transmission Date: 20051028
  Serious: Yes (Hospitalization)
  Sender: FDA-Public Use
  Company Number: 2005-05-2049

PATIENT
  Age: 70 Year
  Sex: Female

DRUGS (4)
  1. TEMODAL [Suspect]
     Dosage: ORAL
     Route: 048
  2. RADIATION THERAPY [Concomitant]
  3. NEURONTIN [Concomitant]
  4. CORTICOSTEROID NOS [Concomitant]

REACTIONS (1)
  - APLASIA [None]
